FAERS Safety Report 10331391 (Version 2)
Quarter: 2014Q3

REPORT INFORMATION
  Report Type: Spontaneous
  Country: US (occurrence: US)
  Receive Date: 20140722
  Receipt Date: 20140804
  Transmission Date: 20150326
  Serious: Yes (Hospitalization, Disabling)
  Sender: FDA-Public Use
  Company Number: US-BAYER-2014-106996

PATIENT
  Age: 22 Year
  Sex: Female
  Weight: 53.97 kg

DRUGS (1)
  1. MIRENA [Suspect]
     Active Substance: LEVONORGESTREL
     Indication: CONTRACEPTION
     Dosage: 20 MCG/24HR, CONT
     Route: 015
     Dates: start: 20090930, end: 20130711

REACTIONS (9)
  - Pain [None]
  - Device issue [None]
  - Uterine perforation [None]
  - Emotional distress [None]
  - Anhedonia [None]
  - General physical health deterioration [None]
  - Injury [None]
  - Discomfort [None]
  - Off label use [None]

NARRATIVE: CASE EVENT DATE: 2009
